FAERS Safety Report 24046656 (Version 4)
Quarter: 2024Q3

REPORT INFORMATION
  Report Type: Spontaneous
  Country: CZ (occurrence: CZ)
  Receive Date: 20240703
  Receipt Date: 20240721
  Transmission Date: 20241017
  Serious: Yes (Other)
  Sender: BAXTER
  Company Number: CZ-EMA-2024617-AUTODUP-1718654949767

PATIENT
  Age: 39 Year
  Sex: Female

DRUGS (31)
  1. DOXORUBICIN [Suspect]
     Active Substance: DOXORUBICIN
     Indication: Anaplastic large cell lymphoma T- and null-cell types
     Dosage: BV-CHEP, 50 MG/M2, D1, FIRST CYCLE
     Route: 042
     Dates: start: 20210623
  2. DOXORUBICIN [Suspect]
     Active Substance: DOXORUBICIN
     Dosage: BV-CHEP, 50 MG/M2, SECOND CYCLE
     Route: 042
     Dates: start: 2021
  3. DOXORUBICIN [Suspect]
     Active Substance: DOXORUBICIN
     Dosage: BV-CHEP, 50 MG/M2, THIRD CYCLE
     Route: 042
     Dates: start: 2021
  4. DOXORUBICIN [Suspect]
     Active Substance: DOXORUBICIN
     Dosage: BV-CHEP, 50 MG/M2, FOURTH CYCLE
     Route: 042
     Dates: start: 2021
  5. DOXORUBICIN [Suspect]
     Active Substance: DOXORUBICIN
     Dosage: BV-CHEP, 50 MG/M2, FIFTH CYCLE
     Route: 042
     Dates: start: 2021
  6. DOXORUBICIN [Suspect]
     Active Substance: DOXORUBICIN
     Dosage: BV-CHEP, 50 MG/M2, SIXTH CYCLE
     Route: 042
     Dates: start: 20211012
  7. CYCLOPHOSPHAMIDE [Suspect]
     Active Substance: CYCLOPHOSPHAMIDE
     Indication: Anaplastic large cell lymphoma T- and null-cell types
     Dosage: BV-CHEP, 750 MG/M2, D1, FIRST CYCLE
     Route: 042
     Dates: start: 20210623
  8. CYCLOPHOSPHAMIDE [Suspect]
     Active Substance: CYCLOPHOSPHAMIDE
     Dosage: BV-CHEP, 750 MG/M2, SECOND CYCLE
     Route: 042
     Dates: start: 2021
  9. CYCLOPHOSPHAMIDE [Suspect]
     Active Substance: CYCLOPHOSPHAMIDE
     Dosage: BV-CHEP, 750 MG/M2, THIRD CYCLE
     Route: 042
     Dates: start: 2021
  10. CYCLOPHOSPHAMIDE [Suspect]
     Active Substance: CYCLOPHOSPHAMIDE
     Dosage: BV-CHEP, 750 MG/M2, FOURTH CYCLE
     Route: 042
     Dates: start: 2021
  11. CYCLOPHOSPHAMIDE [Suspect]
     Active Substance: CYCLOPHOSPHAMIDE
     Dosage: BV-CHEP, 750 MG/M2, FIFTH CYCLE
     Route: 042
     Dates: start: 2021
  12. CYCLOPHOSPHAMIDE [Suspect]
     Active Substance: CYCLOPHOSPHAMIDE
     Dosage: BV-CHEP, 750 MG/M2, SIXTH CYCLE
     Route: 042
     Dates: start: 20211012
  13. ETOPOSIDE [Suspect]
     Active Substance: ETOPOSIDE
     Indication: Anaplastic large cell lymphoma T- and null-cell types
     Dosage: BV-CHEP, 100MG/M2, D1- 3, FIRST CYCLE
     Route: 042
     Dates: start: 20210623
  14. ETOPOSIDE [Suspect]
     Active Substance: ETOPOSIDE
     Dosage: BV-CHEP, DOSE REDUCED TO 100MG/M2/DAY, D1- 2, SECOND CYCLE
     Route: 042
     Dates: start: 2021
  15. ETOPOSIDE [Suspect]
     Active Substance: ETOPOSIDE
     Dosage: BV-CHEP, 100MG/M2, THIRD CYCLE
     Route: 042
     Dates: start: 2021
  16. ETOPOSIDE [Suspect]
     Active Substance: ETOPOSIDE
     Dosage: BV-CHEP, 100MG/M2, FOURTH CYCLE
     Route: 042
     Dates: start: 2021
  17. ETOPOSIDE [Suspect]
     Active Substance: ETOPOSIDE
     Dosage: BV-CHEP, 100MG/M2, FIFTH CYCLE
     Route: 042
     Dates: start: 2021
  18. ETOPOSIDE [Suspect]
     Active Substance: ETOPOSIDE
     Dosage: BV-CHEP, 100MG/M2, SIXTH CYCLE
     Route: 042
     Dates: start: 20211012
  19. BRENTUXIMAB VEDOTIN [Suspect]
     Active Substance: BRENTUXIMAB VEDOTIN
     Indication: Anaplastic large cell lymphoma T- and null-cell types
     Dosage: BV-CHEP , 1.8 MG/KG, D1, FIRST CYCLE
     Route: 042
     Dates: start: 20210623
  20. BRENTUXIMAB VEDOTIN [Suspect]
     Active Substance: BRENTUXIMAB VEDOTIN
     Dosage: BV-CHEP , IN LOWER DOSE OF 1.2 MG/KG, THIRD CYCLE
     Route: 042
     Dates: start: 2021
  21. BRENTUXIMAB VEDOTIN [Suspect]
     Active Substance: BRENTUXIMAB VEDOTIN
     Dosage: BV-CHEP , 1.8 MG/KG, D1, FOURTH CYCLE
     Route: 042
     Dates: start: 2021
  22. BRENTUXIMAB VEDOTIN [Suspect]
     Active Substance: BRENTUXIMAB VEDOTIN
     Dosage: BV-CHEP , 1.8 MG/KG, D1, FIFTH CYCLE
     Route: 042
     Dates: start: 2021
  23. BRENTUXIMAB VEDOTIN [Suspect]
     Active Substance: BRENTUXIMAB VEDOTIN
     Dosage: BV-CHEP , 1.8 MG/KG, D1, SIXTH CYCLE
     Route: 042
     Dates: start: 20211012
  24. PREDNISONE [Suspect]
     Active Substance: PREDNISONE
     Indication: Anaplastic large cell lymphoma T- and null-cell types
     Dosage: BV-CHEP, 100 MG/DAY, D1-5, FIRST CYCLE
     Route: 048
     Dates: start: 20210623
  25. PREDNISONE [Suspect]
     Active Substance: PREDNISONE
     Dosage: BV-CHEP, 100 MG/DAY, SECOND CYCLE
     Route: 048
     Dates: start: 2021
  26. PREDNISONE [Suspect]
     Active Substance: PREDNISONE
     Dosage: BV-CHEP, 100 MG/DAY, THIRD CYCLE
     Route: 048
     Dates: start: 2021
  27. PREDNISONE [Suspect]
     Active Substance: PREDNISONE
     Dosage: BV-CHEP, 100 MG/DAY, FOURTH CYCLE
     Route: 048
     Dates: start: 2021
  28. PREDNISONE [Suspect]
     Active Substance: PREDNISONE
     Dosage: BV-CHEP, 100 MG/DAY,FIFTH CYCLE
     Route: 048
     Dates: start: 2021
  29. PREDNISONE [Suspect]
     Active Substance: PREDNISONE
     Dosage: BV-CHEP, 100 MG/DAY, SIXTH CYCLE
     Route: 048
     Dates: start: 20211012
  30. FILGRASTIM [Concomitant]
     Active Substance: FILGRASTIM
     Indication: Prophylaxis
     Route: 065
     Dates: start: 20210623
  31. FILGRASTIM [Concomitant]
     Active Substance: FILGRASTIM
     Indication: Neutropenia

REACTIONS (10)
  - Neutropenia [Unknown]
  - Neuropathy peripheral [Unknown]
  - Toxicity to various agents [Unknown]
  - Upper respiratory tract infection [Unknown]
  - Tonsillitis [Unknown]
  - Nausea [Unknown]
  - Vomiting [Unknown]
  - Raynaud^s phenomenon [Unknown]
  - Microangiopathy [Unknown]
  - Paraesthesia [Unknown]

NARRATIVE: CASE EVENT DATE: 20210101
